FAERS Safety Report 12298979 (Version 1)
Quarter: 2016Q2

REPORT INFORMATION
  Report Type: Report from Study
  Country: IT (occurrence: IT)
  Receive Date: 20160425
  Receipt Date: 20160425
  Transmission Date: 20160815
  Serious: Yes (Death, Life-Threatening)
  Sender: FDA-Public Use
  Company Number: IT-ACCORD-039875

PATIENT
  Age: 64 Year
  Sex: Female

DRUGS (7)
  1. FOLINIC ACID [Suspect]
     Active Substance: LEUCOVORIN
     Indication: COLON NEOPLASM
     Route: 042
     Dates: start: 20160323, end: 20160323
  2. ATROPINE. [Concomitant]
     Active Substance: ATROPINE
     Route: 042
     Dates: start: 20160323, end: 20160323
  3. FLUOROURACIL. [Suspect]
     Active Substance: FLUOROURACIL
     Indication: COLON NEOPLASM
     Dosage: INFUSION OF FLUOROURACIL AND ELASTOMER
     Route: 042
     Dates: start: 20160323, end: 20160325
  4. AFLIBERCEPT [Suspect]
     Active Substance: AFLIBERCEPT
     Indication: COLON NEOPLASM
     Route: 042
     Dates: start: 20160323, end: 20160323
  5. IRINOTECAN [Suspect]
     Active Substance: IRINOTECAN
     Indication: COLON NEOPLASM
     Route: 042
     Dates: start: 20160323, end: 20160323
  6. PALONOSETRON/PALONOSETRON HYDROCHLORIDE [Concomitant]
     Route: 042
     Dates: start: 20160323, end: 20160323
  7. DEXAMETHASONE. [Concomitant]
     Active Substance: DEXAMETHASONE
     Route: 042
     Dates: start: 20160323, end: 20160323

REACTIONS (4)
  - Febrile neutropenia [Fatal]
  - Haemoglobin decreased [Unknown]
  - Thrombocytopenia [Unknown]
  - Leukopenia [Unknown]

NARRATIVE: CASE EVENT DATE: 20160403
